FAERS Safety Report 6132968-X (Version None)
Quarter: 2009Q1

REPORT INFORMATION
  Report Type: 
  Country: None (occurrence: None)
  Receive Date: 20090325
  Receipt Date: 20090325
  Transmission Date: 20090719
  Serious: Yes (Hospitalization)
  Sender: FDA-Public Use
  Company Number: None

PATIENT
  Sex: Female
  Weight: 63.05 kg

DRUGS (5)
  1. GEMCITABINE [Suspect]
     Indication: LUNG NEOPLASM MALIGNANT
     Dosage: 2100MG ONCE IV
     Route: 042
     Dates: start: 20090317
  2. CARBOPLATIN [Suspect]
     Indication: LUNG NEOPLASM MALIGNANT
     Dosage: 455MG ONCE IV
     Route: 042
     Dates: start: 20090317
  3. AMITRIPTYLINE [Concomitant]
  4. CLONAZEPAM [Concomitant]
  5. PHENERGAN [Concomitant]

REACTIONS (4)
  - COAGULOPATHY [None]
  - DISORIENTATION [None]
  - MUSCULOSKELETAL PAIN [None]
  - PYREXIA [None]
